FAERS Safety Report 9606496 (Version 2)
Quarter: 2013Q4

REPORT INFORMATION
  Report Type: Spontaneous
  Country: US (occurrence: US)
  Receive Date: 20131008
  Receipt Date: 20131008
  Transmission Date: 20140711
  Serious: No
  Sender: FDA-Public Use
  Company Number: US-AMGEN-USASP2013050863

PATIENT
  Age: 76 Year
  Sex: Female
  Weight: 77.1 kg

DRUGS (13)
  1. PROLIA [Suspect]
     Indication: OSTEOPOROSIS POSTMENOPAUSAL
     Dosage: 60 MG, Q6MO
     Route: 058
     Dates: start: 20120802
  2. PROLIA [Suspect]
     Dosage: 60 MG, Q6MO
     Route: 058
     Dates: start: 20130218
  3. LEVOXYL [Concomitant]
  4. METOPROLOL                         /00376902/ [Concomitant]
     Indication: HYPERTENSION
     Dosage: 25 MG, ONE TIME DOSE
     Route: 048
  5. SPIRONOLACTONE [Concomitant]
     Indication: HYPERTENSION
     Dosage: 50 MG, ONE TIME DOSE
     Route: 048
  6. CALCITRIOL [Concomitant]
     Indication: VITAMIN D DEFICIENCY
     Dosage: 0.25 MG, ONE TIME DOSE
     Route: 048
  7. NEXIUM                             /01479302/ [Concomitant]
     Indication: GASTROOESOPHAGEAL REFLUX DISEASE
     Dosage: 40 MG, ONE TIME DOSE
     Route: 048
  8. METAMUCIL                          /00029101/ [Concomitant]
  9. PROBIOTIC                          /06395501/ [Concomitant]
  10. MULTIVITAMIN                       /00097801/ [Concomitant]
  11. CALCIUM [Concomitant]
  12. VITAMIN B COMPLEX [Concomitant]
  13. VOLTAREN                           /00372301/ [Concomitant]
     Indication: PAIN
     Dosage: 100 MG, QD
     Route: 048

REACTIONS (7)
  - Local swelling [Recovered/Resolved]
  - Skin ulcer [Recovered/Resolved]
  - Scab [Recovering/Resolving]
  - Local swelling [Recovered/Resolved]
  - Tenderness [Recovered/Resolved]
  - Eczema [Recovered/Resolved]
  - Erythema [Recovered/Resolved]
